FAERS Safety Report 7939484-0 (Version None)
Quarter: 2011Q4

REPORT INFORMATION
  Report Type: 
  Country: None (occurrence: None)
  Receive Date: 20111125
  Receipt Date: 20111116
  Transmission Date: 20120403
  Serious: Yes (Hospitalization, Disabling)
  Sender: FDA-Public Use
  Company Number: US-BAYER-2011-012039

PATIENT
  Age: 17 Year
  Sex: Female
  Weight: 49.887 kg

DRUGS (1)
  1. DROSPIRENONE AND ETHINYL ESTRADIOL [Suspect]
     Indication: ACNE
     Dosage: UNK
     Dates: start: 20081101, end: 20081201

REACTIONS (7)
  - EMOTIONAL DISTRESS [None]
  - PAIN [None]
  - FEAR [None]
  - PARALYSIS [None]
  - HYPOXIC-ISCHAEMIC ENCEPHALOPATHY [None]
  - ANXIETY [None]
  - MYOCARDIAL INFARCTION [None]
